FAERS Safety Report 9103280 (Version 2)
Quarter: 2013Q1

REPORT INFORMATION
  Report Type: Spontaneous
  Country: US (occurrence: US)
  Receive Date: 20130219
  Receipt Date: 20130328
  Transmission Date: 20140127
  Serious: Yes (Hospitalization)
  Sender: FDA-Public Use
  Company Number: US-SANOFI-AVENTIS-2013SA013132

PATIENT
  Age: 25 Year
  Sex: Female
  Weight: 113.39 kg

DRUGS (5)
  1. LANTUS SOLOSTAR [Suspect]
     Dosage: DOSE:430 UNIT(S)
     Route: 058
  2. SOLOSTAR [Suspect]
  3. KLONOPIN [Concomitant]
     Indication: ANXIETY
  4. WELLBUTRIN [Concomitant]
     Indication: DEPRESSION
  5. CYMBALTA [Concomitant]
     Indication: DEPRESSION

REACTIONS (2)
  - Suicide attempt [Recovered/Resolved]
  - Blood glucose decreased [Recovered/Resolved]
